FAERS Safety Report 5894703-X (Version None)
Quarter: 2008Q3

REPORT INFORMATION
  Report Type: 
  Country: None (occurrence: None)
  Receive Date: 20080924
  Receipt Date: 20080509
  Transmission Date: 20090109
  Serious: No
  Sender: FDA-Public Use
  Company Number: US-ASTRAZENECA-2008UW09654

PATIENT
  Age: 21 Year
  Sex: Male
  Weight: 88.5 kg

DRUGS (5)
  1. SEROQUEL [Suspect]
     Indication: BIPOLAR DISORDER
     Route: 048
  2. SEROQUEL [Suspect]
     Route: 048
  3. CYMBALTA [Concomitant]
  4. LAMICTAL [Concomitant]
  5. GAVISCON [Concomitant]

REACTIONS (7)
  - DYSPEPSIA [None]
  - FATIGUE [None]
  - FEELING ABNORMAL [None]
  - GRUNTING [None]
  - INSOMNIA [None]
  - THIRST [None]
  - WEIGHT INCREASED [None]
